FAERS Safety Report 9523389 (Version 1)
Quarter: 2013Q1

REPORT INFORMATION
  Report Type: Spontaneous
  Country: US (occurrence: None)
  Receive Date: 20130305
  Receipt Date: 20130305
  Transmission Date: 20140127
  Serious: Yes (Life-Threatening, Hospitalization)
  Sender: FDA-Public Use
  Company Number: 163-21880-12012550

PATIENT
  Age: 81 Year
  Sex: Male
  Weight: 83.92 kg

DRUGS (10)
  1. REVLIMID (LENALIDOMIDE) (25 MILLIGRAM, CAPSULES) [Suspect]
     Indication: PLASMA CELL MYELOMA
     Route: 048
     Dates: start: 20110714
  2. ASA ( ACETYLSALICYLIC ACID) ( UNKNOWN) [Concomitant]
  3. CALCIUM D ( OS-CAL) ( UNKNOWN) [Concomitant]
  4. DECADRON ( DEXAMETHASONE) [Concomitant]
  5. LESCOL ( FLUVASTATIN SODIUM) ( UNKNOWN) [Concomitant]
  6. MULTAQ ( DRONEDARONE HYDROCHLORIDE) (UNKNOWN) [Concomitant]
  7. NEXIUM ( ESOMEPRAZOLE) ( UNKNOWN) [Concomitant]
  8. OXYCODONE ( OXYCODONE) ( UNKNOWN) [Concomitant]
  9. WELCHOL ( COLESEVELAM HYDROCHLORIDE) ( UNKNOWN) [Concomitant]
  10. TRICOR ( FENOFIBRATE) (UNKNOWN) [Concomitant]

REACTIONS (1)
  - Heart rate increased [None]
